FAERS Safety Report 20773824 (Version 1)
Quarter: 2022Q2

REPORT INFORMATION
  Report Type: Spontaneous
  Country: US (occurrence: None)
  Receive Date: 20220429
  Receipt Date: 20220429
  Transmission Date: 20220720
  Serious: Yes (Other)
  Sender: FDA-Public Use
  Company Number: None

PATIENT
  Age: 37 Year
  Sex: Female
  Weight: 56.7 kg

DRUGS (4)
  1. BOTOX COSMETIC [Suspect]
     Active Substance: ONABOTULINUMTOXINA
     Indication: Skin wrinkling
     Route: 058
     Dates: start: 20220414
  2. XANAX [Concomitant]
     Active Substance: ALPRAZOLAM
  3. GABAPENTIN [Concomitant]
     Active Substance: GABAPENTIN
  4. CLARITIN [Concomitant]
     Active Substance: LORATADINE

REACTIONS (13)
  - Injection site pain [None]
  - Feeling abnormal [None]
  - Head discomfort [None]
  - Tinnitus [None]
  - Dizziness [None]
  - Palpitations [None]
  - Anxiety [None]
  - Asthenia [None]
  - Illness [None]
  - Toxicity to various agents [None]
  - Paraesthesia [None]
  - Lymphadenopathy [None]
  - Unevaluable event [None]

NARRATIVE: CASE EVENT DATE: 20220414
